FAERS Safety Report 6021527-5 (Version None)
Quarter: 2008Q4

REPORT INFORMATION
  Report Type: 
  Country: None (occurrence: None)
  Receive Date: 20081229
  Receipt Date: 20081225
  Transmission Date: 20090506
  Serious: Yes (Death, Hospitalization)
  Sender: FDA-Public Use
  Company Number: JP-BRISTOL-MYERS SQUIBB COMPANY-14126734

PATIENT
  Age: 59 Year
  Sex: Female

DRUGS (6)
  1. TAXOL [Suspect]
     Indication: BREAST CANCER
     Dosage: 30 NOV2007-CYC1,DAY 1:158MG/DAY, 19 MAR2008-CYC5,DAY 1:147MG/DAY
     Route: 042
     Dates: start: 20080319, end: 20080319
  2. AVASTIN [Suspect]
     Indication: BREAST CANCER
     Dosage: 30 NOV2007-CYC1,DAY 1:779MG/DAY, 19 MAR2008-CYC5,DAY 1:158MG/DAY
     Route: 042
     Dates: start: 20080319, end: 20080319
  3. MORPHINE HCL ELIXIR [Suspect]
     Indication: PAIN
     Route: 058
     Dates: start: 20080402
  4. OXYCODONE [Concomitant]
     Dates: start: 20071203
  5. LOXOPROFEN [Concomitant]
     Dates: start: 20080123
  6. ACETAMINOPHEN [Concomitant]
     Dates: start: 20071227

REACTIONS (3)
  - ANOREXIA [None]
  - DELIRIUM [None]
  - MALIGNANT NEOPLASM PROGRESSION [None]
